FAERS Safety Report 4844709-4 (Version None)
Quarter: 2005Q4

REPORT INFORMATION
  Report Type: 
  Country: None (occurrence: None)
  Receive Date: 20051129
  Receipt Date: 20051117
  Transmission Date: 20060501
  Serious: Yes (Hospitalization)
  Sender: FDA-Public Use
  Company Number: WAES 0511MYS00004

PATIENT
  Age: 43 Year
  Sex: Male

DRUGS (5)
  1. COZAAR [Suspect]
     Indication: MYOCARDIAL ISCHAEMIA
     Dosage: PO
     Route: 048
     Dates: start: 20040210
  2. BISOPROLOL [Concomitant]
  3. DIGOXIN [Concomitant]
  4. FENOFIBRATE [Concomitant]
  5. FUROSEMIDE [Concomitant]

REACTIONS (6)
  - CREPITATIONS [None]
  - DYSPNOEA [None]
  - PRODUCTIVE COUGH [None]
  - PYREXIA [None]
  - RHONCHI [None]
  - SPUTUM DISCOLOURED [None]
